FAERS Safety Report 6892086-X (Version None)
Quarter: 2010Q3

REPORT INFORMATION
  Report Type: 
  Country: None (occurrence: None)
  Receive Date: 20100731
  Receipt Date: 20080131
  Transmission Date: 20110219
  Serious: No
  Sender: FDA-Public Use
  Company Number: US-PFIZER INC-2007103258

PATIENT
  Sex: Male

DRUGS (1)
  1. INSPRA [Suspect]

REACTIONS (5)
  - ABDOMINAL PAIN UPPER [None]
  - BLOOD PRESSURE INCREASED [None]
  - CHILLS [None]
  - INSOMNIA [None]
  - NECK PAIN [None]
